FAERS Safety Report 15424103 (Version 2)
Quarter: 2018Q4

REPORT INFORMATION
  Report Type: Report from Study
  Country: DE (occurrence: DE)
  Receive Date: 20180925
  Receipt Date: 20181005
  Transmission Date: 20190204
  Serious: Yes (Other)
  Sender: FDA-Public Use
  Company Number: PHHY2018DE039276

PATIENT
  Age: 33 Year
  Sex: Male

DRUGS (5)
  1. COSENTYX [Suspect]
     Active Substance: SECUKINUMAB
     Dosage: 300 MG, UNK
     Route: 065
     Dates: start: 20161123, end: 20180204
  2. COSENTYX [Suspect]
     Active Substance: SECUKINUMAB
     Dosage: UNK
     Route: 065
     Dates: start: 20180204, end: 20180216
  3. COSENTYX [Suspect]
     Active Substance: SECUKINUMAB
     Indication: PSORIASIS
     Dosage: 300 MG, UNK
     Route: 065
     Dates: start: 20161025, end: 20161122
  4. COSENTYX [Suspect]
     Active Substance: SECUKINUMAB
     Dosage: 300 UNK, UNK
     Route: 058
     Dates: start: 20180804
  5. ASPIRIN. [Suspect]
     Active Substance: ASPIRIN
     Indication: NASOPHARYNGITIS
     Dosage: 500 MG, UNK
     Route: 065
     Dates: start: 20180204, end: 20180204

REACTIONS (8)
  - Erythema [Recovering/Resolving]
  - Face oedema [Recovering/Resolving]
  - Rash [Recovering/Resolving]
  - Burning sensation [Recovering/Resolving]
  - Angioedema [Recovering/Resolving]
  - Drug hypersensitivity [Recovered/Resolved]
  - Nasopharyngitis [Recovered/Resolved]
  - Wound [Recovering/Resolving]

NARRATIVE: CASE EVENT DATE: 20180204
